FAERS Safety Report 10510789 (Version 3)
Quarter: 2014Q4

REPORT INFORMATION
  Report Type: Spontaneous
  Country: US (occurrence: US)
  Receive Date: 20141010
  Receipt Date: 20141120
  Transmission Date: 20150528
  Serious: Yes (Other)
  Sender: FDA-Public Use
  Company Number: US-PFIZER INC-2014277758

PATIENT
  Age: 72 Year
  Sex: Male
  Weight: 80.73 kg

DRUGS (2)
  1. DILANTIN [Suspect]
     Active Substance: PHENYTOIN
     Dosage: 1800 MG, WEEKLY
  2. DILANTIN [Suspect]
     Active Substance: PHENYTOIN
     Dosage: 200 MG ON MONDAY, WEDNESDAY AND FRIDAY AND 300 MG ON TUESDAY, THURSDAY ,SATURDAY, SUNDAY

REACTIONS (4)
  - Drug level increased [Unknown]
  - Seizure [Unknown]
  - Prescribed overdose [Unknown]
  - Somnolence [Unknown]
